FAERS Safety Report 13510249 (Version 1)
Quarter: 2017Q2

REPORT INFORMATION
  Report Type: Report from Study
  Country: FR (occurrence: FR)
  Receive Date: 20170503
  Receipt Date: 20170503
  Transmission Date: 20170830
  Serious: Yes (Hospitalization)
  Sender: FDA-Public Use
  Company Number: US-ASTRAZENECA-2017SE25019

PATIENT
  Age: 26160 Day
  Sex: Male
  Weight: 95 kg

DRUGS (9)
  1. LEDERFOLINE [Concomitant]
     Active Substance: LEUCOVORIN CALCIUM
     Indication: PROPHYLAXIS
     Route: 048
  2. ZELITREX [Concomitant]
     Active Substance: VALACYCLOVIR HYDROCHLORIDE
     Indication: INFECTION PROPHYLAXIS
     Route: 048
  3. ALLOPURINOL. [Concomitant]
     Active Substance: ALLOPURINOL
     Indication: PROPHYLAXIS
     Route: 048
     Dates: start: 20160115, end: 20170125
  4. MEDI4736 [Suspect]
     Active Substance: DURVALUMAB
     Indication: B-CELL LYMPHOMA
     Route: 041
     Dates: start: 20170125, end: 20170125
  5. BACTRIM [Concomitant]
     Active Substance: SULFAMETHOXAZOLE\TRIMETHOPRIM
     Indication: INFECTION PROPHYLAXIS
     Route: 048
  6. VESICARE [Concomitant]
     Active Substance: SOLIFENACIN SUCCINATE
     Route: 048
  7. LOVENOX [Concomitant]
     Active Substance: ENOXAPARIN SODIUM
     Indication: PROPHYLAXIS
     Route: 058
  8. MEDI4736 [Suspect]
     Active Substance: DURVALUMAB
     Indication: B-CELL LYMPHOMA
     Route: 041
     Dates: start: 20161228, end: 20161228
  9. MEDI4736 [Suspect]
     Active Substance: DURVALUMAB
     Indication: B-CELL LYMPHOMA
     Route: 041
     Dates: start: 20170323

REACTIONS (1)
  - Pleural infection bacterial [Recovered/Resolved]

NARRATIVE: CASE EVENT DATE: 20170215
